FAERS Safety Report 22171466 (Version 1)
Quarter: 2023Q2

REPORT INFORMATION
  Report Type: Spontaneous
  Country: GB (occurrence: GB)
  Receive Date: 20230404
  Receipt Date: 20230404
  Transmission Date: 20230722
  Serious: Yes (Other)
  Sender: FDA-Public Use
  Company Number: GB-MYLANLABS-2023M1034910

PATIENT
  Age: 61 Year
  Sex: Male

DRUGS (1)
  1. FLUOROURACIL [Suspect]
     Active Substance: FLUOROURACIL
     Indication: Bowen^s disease
     Dosage: UNK (THE CREAM HAD BEEN USED TO TREAT AREAS OF BOWEN DISEASE...
     Route: 061
     Dates: start: 201912

REACTIONS (2)
  - Dermatitis contact [Unknown]
  - Reaction to excipient [Unknown]
